FAERS Safety Report 11564933 (Version 1)
Quarter: 2015Q3

REPORT INFORMATION
  Report Type: Report from Study
  Country: US (occurrence: US)
  Receive Date: 20150928
  Receipt Date: 20150928
  Transmission Date: 20151125
  Serious: No
  Sender: FDA-Public Use
  Company Number: US-EXELIXIS-CABO-14004191

PATIENT
  Age: 65 Year
  Sex: Male
  Weight: 72 kg

DRUGS (2)
  1. COMETRIQ [Suspect]
     Active Substance: CABOZANTINIB S-MALATE
     Indication: THYROID CANCER
     Dosage: 140 MG, QD
     Route: 048
     Dates: start: 20140109, end: 20140424
  2. COMETRIQ [Suspect]
     Active Substance: CABOZANTINIB S-MALATE
     Dosage: 140 MG, QD
     Route: 048
     Dates: start: 20140522

REACTIONS (15)
  - Palmar-plantar erythrodysaesthesia syndrome [Not Recovered/Not Resolved]
  - Decreased appetite [Not Recovered/Not Resolved]
  - Sinus headache [Unknown]
  - Alopecia [Unknown]
  - Fatigue [Not Recovered/Not Resolved]
  - Laceration [Unknown]
  - Discomfort [Unknown]
  - Impaired healing [Unknown]
  - Hair colour changes [Not Recovered/Not Resolved]
  - Diarrhoea [Unknown]
  - Weight decreased [Unknown]
  - Asthenia [Unknown]
  - Blood glucose increased [Unknown]
  - Wound dehiscence [Unknown]
  - Oropharyngeal pain [Not Recovered/Not Resolved]

NARRATIVE: CASE EVENT DATE: 2014
